FAERS Safety Report 5608700-2 (Version None)
Quarter: 2008Q1

REPORT INFORMATION
  Report Type: 
  Country: None (occurrence: None)
  Receive Date: 20080131
  Receipt Date: 20080121
  Transmission Date: 20080703
  Serious: Yes (Hospitalization)
  Sender: FDA-Public Use
  Company Number: JP-PFIZER INC-2008007730

PATIENT
  Age: 75 Year
  Sex: Male

DRUGS (2)
  1. IRINOTECAN HCL [Suspect]
     Indication: GASTRIC CANCER
     Dosage: DAILY DOSE:80MG/M2-TEXT:95MG/BODY INTERMITTENT (4TIMES)(80MG/M2)
     Route: 042
     Dates: start: 20071001, end: 20071130
  2. MITOMYCIN [Concomitant]
     Indication: GASTRIC CANCER
     Dosage: DAILY DOSE:3MG

REACTIONS (1)
  - LIVER DISORDER [None]
